FAERS Safety Report 18907401 (Version 7)
Quarter: 2021Q2

REPORT INFORMATION
  Report Type: Report from Study
  Country: JP (occurrence: JP)
  Receive Date: 20210217
  Receipt Date: 20210602
  Transmission Date: 20210717
  Serious: Yes (Hospitalization)
  Sender: FDA-Public Use
  Company Number: JP-CELGENEUS-JPN-20200806317

PATIENT
  Age: 68 Year
  Sex: Male
  Weight: 51 kg

DRUGS (23)
  1. CARBOPLATIN. [Suspect]
     Active Substance: CARBOPLATIN
     Indication: NON-SMALL CELL LUNG CANCER STAGE IV
     Dosage: TITRATED TO AN AREA UNDER THE CURVE (AUC) OF 6 MILLIGRAM/MILLILITER/MINUTE, ON DAY 1 Q3W
     Route: 042
     Dates: start: 20200507, end: 20200625
  2. REBAMIPIDE [Concomitant]
     Active Substance: REBAMIPIDE
     Indication: GASTRITIS
     Dosage: 300 MILLIGRAM
     Route: 048
     Dates: start: 20200305
  3. LEVOFLOXACIN. [Concomitant]
     Active Substance: LEVOFLOXACIN
     Indication: CHOLECYSTITIS
     Dosage: 500 MILLIGRAM
     Route: 048
     Dates: start: 20200730, end: 20200803
  4. CALONAL [Concomitant]
     Active Substance: ACETAMINOPHEN
     Indication: TUMOUR PAIN
     Dosage: 2000 MILLIGRAM
     Route: 048
     Dates: start: 20200305
  5. LEVOFLOXACIN. [Concomitant]
     Active Substance: LEVOFLOXACIN
     Indication: PNEUMONIA
     Dosage: 500 MILLIGRAM
     Route: 048
     Dates: start: 20200813, end: 20200817
  6. LOXOPROFEN SODIUM [Concomitant]
     Active Substance: LOXOPROFEN SODIUM
     Indication: TUMOUR PAIN
     Dosage: 180 MILLIGRAM
     Route: 048
     Dates: start: 20200305
  7. BISOPROLOL FUMARATE. [Concomitant]
     Active Substance: BISOPROLOL FUMARATE
     Indication: CORONARY ARTERY DISEASE
     Dosage: 1.25 MILLIGRAM
     Route: 048
     Dates: start: 20200305
  8. SUGLAT [Concomitant]
     Active Substance: IPRAGLIFLOZIN L-PROLINE
     Indication: DIABETES MELLITUS
     Dosage: 50 MILLIGRAM
     Route: 048
     Dates: start: 20200305
  9. PEMBROLIZUMAB (MK?3475) [Suspect]
     Active Substance: PEMBROLIZUMAB
     Dosage: 200 MILLIGRAM, ON DAY 1 Q3W
     Route: 042
     Dates: start: 20200716, end: 20200716
  10. TAKECAB [Concomitant]
     Active Substance: VONOPRAZAN FUMARATE
     Indication: GASTRITIS
     Dosage: 10 MILLIGRAM
     Route: 048
     Dates: start: 20200305
  11. OXYCONTIN [Concomitant]
     Active Substance: OXYCODONE HYDROCHLORIDE
     Indication: TUMOUR PAIN
     Dosage: 10 MILLIGRAM
     Route: 048
     Dates: start: 20200513
  12. PEMBROLIZUMAB (MK?3475) [Suspect]
     Active Substance: PEMBROLIZUMAB
     Indication: NON-SMALL CELL LUNG CANCER STAGE IV
     Dosage: 200 MILLIGRAM, ON DAY 1 Q3W
     Route: 042
     Dates: start: 20200507, end: 20200625
  13. CARBOPLATIN. [Suspect]
     Active Substance: CARBOPLATIN
     Dosage: TITRATED TO AN AREA UNDER THE CURVE (AUC) OF 6 MILLIGRAM/MILLILITER/MINUTE, ON DAY 1 Q3W
     Route: 042
     Dates: start: 20200716, end: 20200716
  14. OXINORM [OXYCODONE HYDROCHLORIDE] [Concomitant]
     Active Substance: OXYCODONE HYDROCHLORIDE
     Indication: TUMOUR PAIN
     Dosage: TOTAL DAILY DOSE: 2.5 MILLIGRAM, PRN
     Route: 048
     Dates: start: 20200506
  15. SYMPROIC [Concomitant]
     Active Substance: NALDEMEDINE
     Indication: CONSTIPATION
     Dosage: .2 MILLIGRAM
     Route: 048
     Dates: start: 20200513
  16. LYRICA [Concomitant]
     Active Substance: PREGABALIN
     Indication: TUMOUR PAIN
     Dosage: 150 MILLIGRAM
     Route: 048
     Dates: start: 20200305
  17. ALFACALCIDOL [Concomitant]
     Active Substance: ALFACALCIDOL
     Indication: HYPOCALCAEMIA
     Dosage: 0.5 MICROGRAM, QD
     Route: 048
     Dates: start: 20200416
  18. RANMARK [Concomitant]
     Active Substance: DENOSUMAB
     Indication: METASTASES TO BONE
     Dosage: TOTAL DAILY DOSE: 120 MILLIGRAM, QM
     Route: 058
     Dates: start: 20200416
  19. ROSUVASTATIN. [Concomitant]
     Active Substance: ROSUVASTATIN
     Indication: CORONARY ARTERY DISEASE
     Dosage: 5 MILLIGRAM
     Route: 048
     Dates: start: 20200305
  20. ABRAXANE [Suspect]
     Active Substance: PACLITAXEL
     Indication: NON-SMALL CELL LUNG CANCER STAGE IV
     Dosage: 100 MILLIGRAM/SQ. METER (DAYS 1, 8, AND 15), Q3W
     Route: 042
     Dates: start: 20200507, end: 20200716
  21. ABRAXANE [Suspect]
     Active Substance: PACLITAXEL
     Dosage: 100 MILLIGRAM/SQ. METER (DAYS 1, 8, AND 15), Q3W
     Route: 042
     Dates: start: 20200723, end: 20200723
  22. NICORANDIL [Concomitant]
     Active Substance: NICORANDIL
     Indication: CORONARY ARTERY DISEASE
     Dosage: 15 MILLIGRAM
     Route: 048
     Dates: start: 20200305
  23. ASPARA?CA [Concomitant]
     Active Substance: CALCIUM ASPARTATE
     Indication: HYPOCALCAEMIA
     Dosage: 600 MILLIGRAM
     Route: 048
     Dates: start: 20200416

REACTIONS (2)
  - Autoimmune hepatitis [Not Recovered/Not Resolved]
  - Cholangitis [Recovered/Resolved]

NARRATIVE: CASE EVENT DATE: 20200817
